FAERS Safety Report 19642559 (Version 2)
Quarter: 2021Q3

REPORT INFORMATION
  Report Type: Spontaneous
  Country: JP (occurrence: JP)
  Receive Date: 20210730
  Receipt Date: 20210803
  Transmission Date: 20211014
  Serious: Yes (Other)
  Sender: FDA-Public Use
  Company Number: JP-PFIZER INC-202100910685

PATIENT

DRUGS (1)
  1. SELARA [Suspect]
     Active Substance: EPLERENONE
     Dosage: UNK

REACTIONS (1)
  - Blood potassium decreased [Unknown]
